FAERS Safety Report 7678825-9 (Version None)
Quarter: 2011Q3

REPORT INFORMATION
  Report Type: 
  Country: None (occurrence: None)
  Receive Date: 20110812
  Receipt Date: 20110808
  Transmission Date: 20111222
  Serious: Yes (Other)
  Sender: FDA-Public Use
  Company Number: US-BRISTOL-MYERS SQUIBB COMPANY-15953755

PATIENT
  Age: 64 Year
  Sex: Female

DRUGS (4)
  1. PREMARIN [Concomitant]
     Route: 048
  2. TENORMIN [Concomitant]
     Route: 048
  3. KENALOG [Suspect]
     Indication: URTICARIA
     Dosage: 1DF=20MG/0.5CC*8.
     Route: 030
     Dates: start: 20090101, end: 20110311
  4. DEXAMETHASONE SODIUM PHOSPHATE [Suspect]
     Indication: URTICARIA
     Dosage: 1DF=120MG/0.5CC*8,INJ
     Route: 030
     Dates: start: 20090101, end: 20110311

REACTIONS (6)
  - DRUG ADMINISTRATION ERROR [None]
  - INJECTION SITE INJURY [None]
  - INJECTION SITE ATROPHY [None]
  - INJECTION SITE REACTION [None]
  - INJECTION SITE HAEMORRHAGE [None]
  - INJECTION SITE DISCOLOURATION [None]
